FAERS Safety Report 24125049 (Version 1)
Quarter: 2024Q3

REPORT INFORMATION
  Report Type: Spontaneous
  Country: TR (occurrence: TR)
  Receive Date: 20240723
  Receipt Date: 20240723
  Transmission Date: 20241017
  Serious: Yes (Hospitalization, Disabling, Other)
  Sender: JUBILANT
  Company Number: TR-MLMSERVICE-20240705-PI124892-00246-1

PATIENT
  Age: 60 Year
  Sex: Female

DRUGS (9)
  1. OLANZAPINE [Suspect]
     Active Substance: OLANZAPINE
     Indication: Psychotic symptom
     Dosage: 10 MG, ONCE PER DAY, INCREASING THE DOSE
     Dates: start: 2020, end: 2020
  2. OLANZAPINE [Suspect]
     Active Substance: OLANZAPINE
     Indication: Depressive symptom
     Dosage: 5 MG, ONCE PER DAY
     Dates: start: 2020, end: 2020
  3. LITHIUM [Suspect]
     Active Substance: LITHIUM
     Indication: Bipolar I disorder
     Dosage: CONTINUED TREATMENT REGULARLY
     Dates: start: 1990, end: 2019
  4. LITHIUM [Suspect]
     Active Substance: LITHIUM
     Indication: Bipolar I disorder
     Dosage: 1200 MG, ONCE PER DAY
     Dates: start: 2019
  5. LITHIUM [Suspect]
     Active Substance: LITHIUM
     Dosage: STARTED USING LITHIUM IRREGULARLY IN EARLY 2019
     Dates: start: 2019, end: 2019
  6. LITHIUM [Suspect]
     Active Substance: LITHIUM
     Dosage: 600 MG, ONCE PER DAY,DOSE WAS REDUCED
  7. LITHIUM [Suspect]
     Active Substance: LITHIUM
     Dosage: 300 MG, EVERY OTHER DAY, TREATMENT WAS ADJUSTED
     Dates: start: 2020, end: 2020
  8. SERTRALINE [Concomitant]
     Active Substance: SERTRALINE HYDROCHLORIDE
     Indication: Psychotic symptom
     Dosage: 25 MG, ONCE PER DAY
     Dates: start: 2020, end: 2020
  9. SERTRALINE [Concomitant]
     Active Substance: SERTRALINE HYDROCHLORIDE
     Indication: Depressive symptom

REACTIONS (3)
  - Catatonia [Recovered/Resolved]
  - Neurotoxicity [Recovered/Resolved]
  - Extrapyramidal disorder [Recovered/Resolved]

NARRATIVE: CASE EVENT DATE: 20200101
